FAERS Safety Report 10190309 (Version 1)
Quarter: 2014Q2

REPORT INFORMATION
  Report Type: Spontaneous
  Country: US (occurrence: None)
  Receive Date: 20140521
  Receipt Date: 20140521
  Transmission Date: 20141212
  Serious: Yes (Hospitalization)
  Sender: FDA-Public Use
  Company Number: None

PATIENT
  Age: 88 Year
  Sex: Male
  Weight: 73.8 kg

DRUGS (1)
  1. RITUXIMAB (MOAB C2B8 ANTI CD20, CHIMERIC) [Suspect]

REACTIONS (11)
  - Pyrexia [None]
  - Chills [None]
  - Asthenia [None]
  - Diarrhoea [None]
  - Nausea [None]
  - Disorientation [None]
  - Neutrophil count decreased [None]
  - Haemoglobin decreased [None]
  - White blood cell count decreased [None]
  - Pseudomonas test positive [None]
  - Urinary retention [None]
